FAERS Safety Report 17724254 (Version 13)
Quarter: 2023Q2

REPORT INFORMATION
  Report Type: Spontaneous
  Country: US (occurrence: US)
  Receive Date: 20200429
  Receipt Date: 20230622
  Transmission Date: 20230722
  Serious: Yes (Other)
  Sender: FDA-Public Use
  Company Number: US-VERTEX PHARMACEUTICALS-2020-009535

PATIENT
  Sex: Male

DRUGS (17)
  1. TRIKAFTA [Suspect]
     Active Substance: ELEXACAFTOR\IVACAFTOR\TEZACAFTOR
     Indication: Cystic fibrosis
     Dosage: 2 ORANGE TABS AM AND 1 BLUE TAB PM
     Route: 048
     Dates: start: 20191127, end: 20200424
  2. TRIKAFTA [Suspect]
     Active Substance: ELEXACAFTOR\IVACAFTOR\TEZACAFTOR
     Dosage: 1 ORANGE TAB DAILY
     Route: 048
     Dates: start: 20200704, end: 2020
  3. TRIKAFTA [Suspect]
     Active Substance: ELEXACAFTOR\IVACAFTOR\TEZACAFTOR
     Dosage: 1 ORANGE TAB AM, 1 BLUE TAB PM
     Route: 048
     Dates: start: 20200730, end: 20211119
  4. VITAMIN D [Concomitant]
     Active Substance: VITAMIN D NOS
  5. LORATADINE [Concomitant]
     Active Substance: LORATADINE
  6. ALBUTEROL [Concomitant]
     Active Substance: ALBUTEROL
  7. ACETYLCYSTEINE [Concomitant]
     Active Substance: ACETYLCYSTEINE
  8. OMEPRAZOLE [Concomitant]
     Active Substance: OMEPRAZOLE
  9. SODIUM CHLORIDE [Concomitant]
     Active Substance: SODIUM CHLORIDE
  10. PULMOZYME [Concomitant]
     Active Substance: DORNASE ALFA
  11. CREON [Concomitant]
     Active Substance: PANCRELIPASE AMYLASE\PANCRELIPASE LIPASE\PANCRELIPASE PROTEASE
  12. IRON [Concomitant]
     Active Substance: IRON
  13. BORON [Concomitant]
     Active Substance: BORON
  14. .BETA.-CAROTENE [Concomitant]
     Active Substance: .BETA.-CAROTENE
  15. DIM [Concomitant]
  16. IODINE [Concomitant]
     Active Substance: IODINE
  17. 3,3^-DIINDOLYLMETHANE [Concomitant]
     Active Substance: 3,3^-DIINDOLYLMETHANE

REACTIONS (30)
  - Rash [Unknown]
  - Liver function test increased [Unknown]
  - Suicidal ideation [Unknown]
  - Haemangioma of skin [Unknown]
  - Eye pruritus [Unknown]
  - Nightmare [Unknown]
  - Panic attack [Unknown]
  - Feeling abnormal [Unknown]
  - Hallucination [Unknown]
  - Amnesia [Unknown]
  - Cognitive disorder [Unknown]
  - Repetitive speech [Unknown]
  - Abnormal dreams [Not Recovered/Not Resolved]
  - Gait disturbance [Not Recovered/Not Resolved]
  - Speech disorder [Unknown]
  - Fluid retention [Unknown]
  - Memory impairment [Not Recovered/Not Resolved]
  - Brain fog [Unknown]
  - Muscle fatigue [Unknown]
  - Mood swings [Unknown]
  - Muscle spasms [Not Recovered/Not Resolved]
  - Muscle twitching [Not Recovered/Not Resolved]
  - Eye colour change [Unknown]
  - Eye irritation [Unknown]
  - Dry eye [Unknown]
  - Tremor [Unknown]
  - Insomnia [Unknown]
  - Skin disorder [Unknown]
  - Pruritus [Recovering/Resolving]
  - Blood thyroid stimulating hormone increased [Unknown]

NARRATIVE: CASE EVENT DATE: 20200101
